FAERS Safety Report 23722778 (Version 1)
Quarter: 2024Q2

REPORT INFORMATION
  Report Type: Spontaneous
  Country: CN (occurrence: CN)
  Receive Date: 20240409
  Receipt Date: 20240409
  Transmission Date: 20240716
  Serious: Yes (Hospitalization)
  Sender: FDA-Public Use
  Company Number: CN-PFIZER INC-PV202400045581

PATIENT
  Age: 51 Year
  Sex: Male

DRUGS (4)
  1. ZYVOX [Suspect]
     Active Substance: LINEZOLID
     Indication: Septic shock
     Dosage: 0.6 G, 2X/DAY
     Dates: start: 20240304, end: 20240305
  2. BRILINTA [Suspect]
     Active Substance: TICAGRELOR
     Indication: Coronary artery disease
     Dosage: 90 MG, 2X/DAY
     Dates: start: 20240303, end: 20240308
  3. ASPIRIN [Suspect]
     Active Substance: ASPIRIN
     Indication: Coronary artery disease
     Dosage: 100 MG, 1X/DAY
     Dates: start: 20240303, end: 20240308
  4. MEROPENEM [Concomitant]
     Active Substance: MEROPENEM
     Indication: Diabetic ketoacidosis
     Dosage: 1 G, 3X/DAY
     Dates: start: 20240304, end: 20240315

REACTIONS (4)
  - Platelet count decreased [Recovering/Resolving]
  - Myelosuppression [Recovering/Resolving]
  - Renal impairment [Unknown]
  - Condition aggravated [Unknown]

NARRATIVE: CASE EVENT DATE: 20240307
